FAERS Safety Report 17021453 (Version 1)
Quarter: 2019Q4

REPORT INFORMATION
  Report Type: Spontaneous
  Country: US (occurrence: US)
  Receive Date: 20191111
  Receipt Date: 20191111
  Transmission Date: 20200122
  Serious: No
  Sender: FDA-Public Use
  Company Number: None

PATIENT
  Age: 57 Year
  Sex: Male

DRUGS (8)
  1. AMINOCAPROIC ACID. [Suspect]
     Active Substance: AMINOCAPROIC ACID
     Indication: VON WILLEBRAND^S DISEASE
     Route: 048
     Dates: start: 20190118
  2. DELZICOL [Concomitant]
     Active Substance: MESALAMINE
  3. ESCITALOPRAM [Concomitant]
     Active Substance: ESCITALOPRAM OXALATE
  4. FLUTICASONE. [Concomitant]
     Active Substance: FLUTICASONE
  5. MESALAMINE. [Concomitant]
     Active Substance: MESALAMINE
  6. VITAMIN D [Concomitant]
     Active Substance: VITAMIN D NOS
  7. FAMOTIDINE. [Concomitant]
     Active Substance: FAMOTIDINE
  8. GEMFIBROZIL. [Concomitant]
     Active Substance: GEMFIBROZIL

REACTIONS (3)
  - Haemorrhage [None]
  - Incorrect dose administered [None]
  - Malaise [None]

NARRATIVE: CASE EVENT DATE: 20191108
